FAERS Safety Report 16868860 (Version 2)
Quarter: 2019Q4

REPORT INFORMATION
  Report Type: Spontaneous
  Country: US (occurrence: US)
  Receive Date: 20190930
  Receipt Date: 20191011
  Transmission Date: 20200122
  Serious: No
  Sender: FDA-Public Use
  Company Number: US-BEH-2019107318

PATIENT
  Age: 56 Year
  Sex: Female

DRUGS (3)
  1. HIZENTRA [Suspect]
     Active Substance: HUMAN IMMUNOGLOBULIN G
     Dosage: UNK
     Route: 058
     Dates: start: 20191004, end: 20191004
  2. HIZENTRA [Suspect]
     Active Substance: HUMAN IMMUNOGLOBULIN G
     Indication: IMMUNODEFICIENCY COMMON VARIABLE
     Dosage: 10 GRAM, QOW
     Route: 058
     Dates: start: 20170919
  3. HIZENTRA [Suspect]
     Active Substance: HUMAN IMMUNOGLOBULIN G
     Dosage: 2 GRAM, QOW
     Route: 058
     Dates: start: 20170919

REACTIONS (6)
  - Bronchitis [Unknown]
  - Cold sweat [Recovering/Resolving]
  - Paraesthesia [Recovering/Resolving]
  - Feeling cold [Recovering/Resolving]
  - Oropharyngeal discomfort [Recovering/Resolving]
  - Tongue discomfort [Recovering/Resolving]

NARRATIVE: CASE EVENT DATE: 20191004
